FAERS Safety Report 4273629-1 (Version None)
Quarter: 2004Q1

REPORT INFORMATION
  Report Type: 
  Country: None (occurrence: None)
  Receive Date: 20040119
  Receipt Date: 20031125
  Transmission Date: 20041129
  Serious: Yes (Death, Life-Threatening, Hospitalization)
  Sender: FDA-Public Use
  Company Number: WAES 0311USA02791

PATIENT
  Age: 73 Year
  Sex: Male
  Weight: 97 kg

DRUGS (6)
  1. LIPITOR [Concomitant]
     Dates: end: 20031118
  2. ZETIA [Suspect]
     Indication: HYPERCHOLESTEROLAEMIA
     Route: 048
     Dates: start: 20031031, end: 20031118
  3. PRINIVIL [Concomitant]
     Route: 048
     Dates: end: 20031118
  4. VIAGRA [Concomitant]
  5. VERAPAMIL HYDROCHLORIDE [Concomitant]
     Dates: end: 20031118
  6. COUMADIN [Concomitant]
     Dates: end: 20031118

REACTIONS (8)
  - ACUTE RESPIRATORY DISTRESS SYNDROME [None]
  - ANURIA [None]
  - DISSEMINATED INTRAVASCULAR COAGULATION [None]
  - HEPATIC FAILURE [None]
  - MULTI-ORGAN FAILURE [None]
  - PANCREATITIS ACUTE [None]
  - PANCREATITIS HAEMORRHAGIC [None]
  - RENAL FAILURE ACUTE [None]
